FAERS Safety Report 19892749 (Version 2)
Quarter: 2021Q4

REPORT INFORMATION
  Report Type: Spontaneous
  Country: US (occurrence: US)
  Receive Date: 20210928
  Receipt Date: 20211229
  Transmission Date: 20220304
  Serious: No
  Sender: FDA-Public Use
  Company Number: US-VIRTUS PHARMACEUTICALS, LLC-2021VTS00037

PATIENT
  Age: 77 Year
  Sex: Female

DRUGS (1)
  1. LEVORPHANOL TARTRATE [Suspect]
     Active Substance: LEVORPHANOL TARTRATE
     Indication: Pain
     Dosage: UNK

REACTIONS (1)
  - Drug ineffective [Not Recovered/Not Resolved]
